FAERS Safety Report 11378910 (Version 1)
Quarter: 2015Q3

REPORT INFORMATION
  Report Type: Spontaneous
  Country: US (occurrence: None)
  Receive Date: 20150812
  Receipt Date: 20150812
  Transmission Date: 20151125
  Serious: Yes (Hospitalization)
  Sender: FDA-Public Use
  Company Number: 2015EDG00030

PATIENT
  Age: 60 Year
  Sex: Male

DRUGS (10)
  1. ESCITALOPRAM [Suspect]
     Active Substance: ESCITALOPRAM OXALATE
  2. CEFTRIAXONE (CEFTRIAXONE) [Concomitant]
     Active Substance: CEFTRIAXONE
  3. VALPROATE [Suspect]
     Active Substance: VALPROIC ACID
  4. FENTANYL (FENTANYL) INJECTION [Suspect]
     Active Substance: FENTANYL
     Indication: AGITATION
  5. RISPERIDONE (RISPERIDONE) [Suspect]
     Active Substance: RISPERIDONE
  6. PIPERACILLIN-TAZOBACTAM (PIPERACILLIN-TAZOBACTAM) [Concomitant]
  7. BUPROPION (BUPROPION) [Suspect]
     Active Substance: BUPROPION
  8. AZITHROMYCIN [Concomitant]
     Active Substance: AZITHROMYCIN ANHYDROUS
  9. VANCOMYCIN (VANCOMYCIN) [Concomitant]
     Active Substance: VANCOMYCIN
  10. LORAZEPAM (LORAZEPAM) [Concomitant]
     Active Substance: LORAZEPAM

REACTIONS (2)
  - Neuroleptic malignant syndrome [None]
  - Serotonin syndrome [None]
